FAERS Safety Report 6243429-1 (Version None)
Quarter: 2009Q2

REPORT INFORMATION
  Report Type: 
  Country: None (occurrence: None)
  Receive Date: 20090618
  Receipt Date: 20090313
  Transmission Date: 20091009
  Serious: Yes (Hospitalization)
  Sender: FDA-Public Use
  Company Number: CIP09000623

PATIENT
  Age: 77 Year
  Sex: Female

DRUGS (4)
  1. ACTONEL [Suspect]
     Dosage: 150 MG ONCE MONTHLY, ORAL
     Route: 048
     Dates: start: 20081201, end: 20090301
  2. CALCIUM (CALCIUM) [Concomitant]
  3. ATACAND [Concomitant]
  4. SIMVASTATIN [Concomitant]

REACTIONS (3)
  - ABDOMINAL PAIN UPPER [None]
  - CHEST PAIN [None]
  - NAUSEA [None]
